FAERS Safety Report 7212791-5 (Version None)
Quarter: 2010Q4

REPORT INFORMATION
  Report Type: 
  Country: None (occurrence: None)
  Receive Date: 20101227
  Receipt Date: 20101213
  Transmission Date: 20110411
  Serious: Yes (Death, Life-Threatening)
  Sender: FDA-Public Use
  Company Number: 08-200

PATIENT
  Age: 53 Year
  Sex: Male

DRUGS (9)
  1. FAZACLO ODT [Suspect]
     Indication: SCHIZOPHRENIA
     Dosage: 600 MG DAILY PO
     Route: 048
     Dates: start: 20070802, end: 20080515
  2. RISPERDAL [Concomitant]
  3. ZOLOFT [Concomitant]
  4. COGENTIN [Concomitant]
  5. ZOCOR [Concomitant]
  6. SYNTHROID [Concomitant]
  7. AMITIZA [Concomitant]
  8. MULTIVITAMIN WITH IRON [Concomitant]
  9. METAMUCIL PACKETS [Concomitant]

REACTIONS (2)
  - RESPIRATORY DISORDER [None]
  - UPPER AIRWAY OBSTRUCTION [None]
